FAERS Safety Report 5309485-X (Version None)
Quarter: 2007Q2

REPORT INFORMATION
  Report Type: 
  Country: None (occurrence: None)
  Receive Date: 20070424
  Receipt Date: 20070410
  Transmission Date: 20071010
  Serious: Yes (Death)
  Sender: FDA-Public Use
  Company Number: 2007-01017

PATIENT
  Sex: 0

DRUGS (1)
  1. VELCADE [Suspect]
     Indication: TRANSITIONAL CELL CARCINOMA
     Dosage: 1.30  MG/M2, IV BOLUS
     Route: 040

REACTIONS (1)
  - DEATH [None]
